FAERS Safety Report 7744040-3 (Version None)
Quarter: 2011Q3

REPORT INFORMATION
  Report Type: 
  Country: None (occurrence: None)
  Receive Date: 20110909
  Receipt Date: 20110909
  Transmission Date: 20111222
  Serious: Yes (Other)
  Sender: FDA-Public Use
  Company Number: None

PATIENT
  Age: 76 Year
  Sex: Male
  Weight: 86.1834 kg

DRUGS (2)
  1. FIRMAGON [Suspect]
     Indication: PROSTATE CANCER
     Dosage: 250 MGM X1 SUBCUTANEOUSLY
     Route: 058
     Dates: start: 20110115
  2. FIRMAGON [Suspect]
     Dosage: 80 MGM X1 SUBQ
     Route: 058
     Dates: start: 20110216

REACTIONS (6)
  - CHILLS [None]
  - ARTHRALGIA [None]
  - BACK PAIN [None]
  - MOVEMENT DISORDER [None]
  - ASTHENIA [None]
  - HYPERHIDROSIS [None]
